FAERS Safety Report 17889482 (Version 1)
Quarter: 2020Q2

REPORT INFORMATION
  Report Type: Spontaneous
  Country: CN (occurrence: CN)
  Receive Date: 20200612
  Receipt Date: 20200612
  Transmission Date: 20200714
  Serious: Yes (Hospitalization)
  Sender: FDA-Public Use
  Company Number: CN-PFIZER INC-2020227871

PATIENT
  Age: 23 Year
  Sex: Male
  Weight: 53 kg

DRUGS (3)
  1. QI WEI [Suspect]
     Active Substance: QUETIAPINE FUMARATE
     Dosage: 0.1 G, 3X/DAY
     Route: 048
     Dates: start: 20200529, end: 20200529
  2. ZOLOFT [Suspect]
     Active Substance: SERTRALINE HYDROCHLORIDE
     Indication: DEPRESSION
     Dosage: 50 MG, 1X/DAY
     Route: 048
     Dates: start: 20200529, end: 20200529
  3. QI WEI [Suspect]
     Active Substance: QUETIAPINE FUMARATE
     Indication: DEPRESSION
     Dosage: 50 MG, 3X/DAY
     Route: 048
     Dates: start: 20200529, end: 20200529

REACTIONS (10)
  - Tachycardia [Unknown]
  - Mydriasis [Unknown]
  - Pyrexia [Unknown]
  - Blood pressure increased [Unknown]
  - Hyperhidrosis [Unknown]
  - Hypersensitivity [Not Recovered/Not Resolved]
  - Tremor [Unknown]
  - Palpitations [Unknown]
  - Dysphoria [Unknown]
  - Vision blurred [Unknown]

NARRATIVE: CASE EVENT DATE: 20200529
